FAERS Safety Report 11105690 (Version 2)
Quarter: 2015Q2

REPORT INFORMATION
  Report Type: Spontaneous
  Country: US (occurrence: US)
  Receive Date: 20150512
  Receipt Date: 20150518
  Transmission Date: 20150821
  Serious: Yes (Other)
  Sender: FDA-Public Use
  Company Number: US-ROCHE-1557492

PATIENT
  Age: 27 Year
  Sex: Female
  Weight: 58.5 kg

DRUGS (2)
  1. HECTOROL [Concomitant]
     Active Substance: DOXERCALCIFEROL
     Route: 050
     Dates: start: 20131226
  2. MIRCERA [Suspect]
     Active Substance: METHOXY POLYETHYLENE GLYCOL-EPOETIN BETA
     Indication: ANAEMIA
     Route: 050
     Dates: start: 20150318, end: 20150318

REACTIONS (5)
  - Hyperhidrosis [Recovered/Resolved]
  - Vomiting [Recovering/Resolving]
  - Nausea [Recovered/Resolved]
  - Dyspnoea [Recovered/Resolved]
  - Erythema [Recovered/Resolved]

NARRATIVE: CASE EVENT DATE: 20150318
